FAERS Safety Report 7058010-4 (Version None)
Quarter: 2010Q4

REPORT INFORMATION
  Report Type: 
  Country: None (occurrence: None)
  Receive Date: 20101022
  Receipt Date: 20101013
  Transmission Date: 20110411
  Serious: Yes (Hospitalization)
  Sender: FDA-Public Use
  Company Number: PHHO2010NL15689

PATIENT
  Sex: Female
  Weight: 83 kg

DRUGS (4)
  1. AFINITOR [Suspect]
     Indication: POLYCYSTIC LIVER DISEASE
     Dosage: 2.5MG
     Route: 048
     Dates: start: 20100716, end: 20101013
  2. SANDOSTATIN LAR [Suspect]
     Indication: POLYCYSTIC LIVER DISEASE
     Dosage: 40MG EVERY 4 WEEKS
     Route: 030
     Dates: start: 20100716, end: 20101013
  3. FUROSEMIDE [Suspect]
     Indication: OEDEMA PERIPHERAL
  4. SPIRONOLACTONE [Concomitant]
     Indication: OEDEMA PERIPHERAL

REACTIONS (11)
  - ABDOMINAL CAVITY DRAINAGE [None]
  - ABDOMINAL PAIN [None]
  - ANAEMIA [None]
  - ASCITES [None]
  - BLOOD ALBUMIN DECREASED [None]
  - C-REACTIVE PROTEIN INCREASED [None]
  - INFECTION [None]
  - INFLAMMATORY MARKER INCREASED [None]
  - MALAISE [None]
  - PORTAL HYPERTENSION [None]
  - PYREXIA [None]
